FAERS Safety Report 6690015-5 (Version None)
Quarter: 2010Q2

REPORT INFORMATION
  Report Type: 
  Country: None (occurrence: None)
  Receive Date: 20100421
  Receipt Date: 20100409
  Transmission Date: 20101027
  Serious: Yes (Other)
  Sender: FDA-Public Use
  Company Number: PHHY2010MX12012

PATIENT
  Age: 78 Year
  Sex: Female

DRUGS (4)
  1. ACLASTA [Suspect]
     Indication: OSTEOPOROSIS
     Dosage: 1 INJECTION (5 MG/100 ML) PER DAY
     Route: 042
     Dates: start: 20070201
  2. ACLASTA [Suspect]
     Dosage: 1 INJECTION (5 MG/100 ML) PER DAY
     Route: 042
     Dates: start: 20080201
  3. ACLASTA [Suspect]
     Dosage: 1 INJECTION (5 MG/100 ML) PER DAY
     Route: 042
     Dates: start: 20090201
  4. BI-EUGLUCON M [Concomitant]
     Indication: DIABETES MELLITUS
     Dosage: UNK

REACTIONS (2)
  - PARATHYROID TUMOUR MALIGNANT [None]
  - SALIVARY GLAND MASS [None]
